FAERS Safety Report 7435900-1 (Version None)
Quarter: 2011Q2

REPORT INFORMATION
  Report Type: 
  Country: None (occurrence: None)
  Receive Date: 20110425
  Receipt Date: 20110222
  Transmission Date: 20111010
  Serious: Yes (Hospitalization)
  Sender: FDA-Public Use
  Company Number: PHHO2011DE03461

PATIENT
  Sex: Male
  Weight: 127 kg

DRUGS (8)
  1. ACTOS [Concomitant]
  2. ARCOXIA [Concomitant]
  3. FORTECORTIN [Concomitant]
  4. OVASTAT [Concomitant]
  5. LASIX [Concomitant]
  6. TRENANTONE [Concomitant]
  7. GLEEVEC [Suspect]
     Indication: PROSTATE CANCER
     Dosage: 400 MG, DAILY
     Route: 048
     Dates: start: 20090212
  8. ZOMETA [Suspect]
     Indication: METASTASES TO BONE
     Dosage: UNK
     Route: 042
     Dates: start: 20081201, end: 20101209

REACTIONS (1)
  - OSTEONECROSIS OF JAW [None]
